FAERS Safety Report 4824055-5 (Version None)
Quarter: 2005Q4

REPORT INFORMATION
  Report Type: 
  Country: None (occurrence: None)
  Receive Date: 20051108
  Receipt Date: 20051024
  Transmission Date: 20060501
  Serious: Yes (Life-Threatening, Hospitalization, Other)
  Sender: FDA-Public Use
  Company Number: USA0508105774

PATIENT
  Age: 51 Year
  Sex: Male

DRUGS (2)
  1. HUMATROPE [Suspect]
     Indication: HYPOPITUITARISM
     Dosage: 0.1 MG/1 DAY
  2. TESTOSTERONE [Concomitant]

REACTIONS (9)
  - DEHYDRATION [None]
  - DRUG ADMINISTRATION ERROR [None]
  - DRUG PRESCRIBING ERROR [None]
  - HYPOTENSION [None]
  - INTRASPINAL ABSCESS [None]
  - LOSS OF CONSCIOUSNESS [None]
  - OVERDOSE [None]
  - PHARMACEUTICAL PRODUCT COMPLAINT [None]
  - STREPTOCOCCAL SEPSIS [None]
